FAERS Safety Report 25805015 (Version 1)
Quarter: 2025Q3

REPORT INFORMATION
  Report Type: Spontaneous
  Country: BR (occurrence: BR)
  Receive Date: 20250916
  Receipt Date: 20250916
  Transmission Date: 20251020
  Serious: Yes (Hospitalization, Other)
  Sender: CHEPLAPHARM
  Company Number: BR-CHEPLA-2025010761

PATIENT
  Sex: Female

DRUGS (1)
  1. CLONAZEPAM [Suspect]
     Active Substance: CLONAZEPAM
     Indication: Borderline personality disorder
     Route: 048
     Dates: start: 2017

REACTIONS (9)
  - Drug dependence [Unknown]
  - Condition aggravated [Unknown]
  - Insomnia [Unknown]
  - Emotional disorder [Unknown]
  - Crying [Unknown]
  - Screaming [Unknown]
  - Product dose omission issue [Unknown]
  - Product availability issue [Unknown]
  - Product use in unapproved indication [Unknown]

NARRATIVE: CASE EVENT DATE: 20170101
